FAERS Safety Report 24647595 (Version 2)
Quarter: 2025Q1

REPORT INFORMATION
  Report Type: Spontaneous
  Country: US (occurrence: US)
  Receive Date: 20241121
  Receipt Date: 20250124
  Transmission Date: 20250408
  Serious: Yes (Other)
  Sender: Unknown Manufacturer
  Company Number: US-THERATECHNOLOGIES INC.-2024-THE-IBA-000486

PATIENT

DRUGS (3)
  1. TROGARZO [Suspect]
     Active Substance: IBALIZUMAB-UIYK
     Indication: HIV infection
     Route: 042
     Dates: start: 202310, end: 202310
  2. TROGARZO [Suspect]
     Active Substance: IBALIZUMAB-UIYK
     Route: 042
     Dates: start: 202310
  3. TROGARZO [Suspect]
     Active Substance: IBALIZUMAB-UIYK
     Route: 042
     Dates: start: 20231201, end: 20241124

REACTIONS (8)
  - Angina pectoris [Recovering/Resolving]
  - Vomiting [Recovering/Resolving]
  - Dizziness [Recovering/Resolving]
  - Rash pruritic [Recovering/Resolving]
  - Asthenia [Recovering/Resolving]
  - Malaise [Recovering/Resolving]
  - Product dose omission issue [Recovering/Resolving]
  - Rash erythematous [Recovering/Resolving]

NARRATIVE: CASE EVENT DATE: 20241010
